FAERS Safety Report 5003318-7 (Version None)
Quarter: 2006Q2

REPORT INFORMATION
  Report Type: 
  Country: None (occurrence: None)
  Receive Date: 20060511
  Receipt Date: 20060404
  Transmission Date: 20061013
  Serious: No
  Sender: FDA-Public Use
  Company Number: PHFR2006GB01361

PATIENT
  Sex: Female

DRUGS (1)
  1. LIORESAL [Suspect]

REACTIONS (1)
  - TRANSAMINASES INCREASED [None]
